FAERS Safety Report 5846201-7 (Version None)
Quarter: 2008Q3

REPORT INFORMATION
  Report Type: 
  Country: None (occurrence: None)
  Receive Date: 20080814
  Receipt Date: 20080812
  Transmission Date: 20090109
  Serious: Yes (Death)
  Sender: FDA-Public Use
  Company Number: US-GILEAD-2008-0017742

PATIENT
  Sex: Female
  Weight: 65.83 kg

DRUGS (16)
  1. LETAIRIS [Suspect]
     Indication: PULMONARY ARTERIAL HYPERTENSION
     Route: 048
     Dates: start: 20071021
  2. TARCEVA [Concomitant]
     Route: 048
  3. OMEPRAZOLE [Concomitant]
     Route: 048
  4. REVATIO [Concomitant]
     Route: 048
  5. VESICARE [Concomitant]
     Route: 048
  6. BONIVA [Concomitant]
     Route: 048
  7. SINGULAIR [Concomitant]
     Route: 048
  8. XALATAN [Concomitant]
     Route: 047
  9. LASIX [Concomitant]
     Route: 048
  10. LIPITOR [Concomitant]
     Route: 048
  11. FLUOCINONIDE [Concomitant]
     Route: 061
  12. METOCLOPRAMIDE [Concomitant]
     Route: 048
  13. DIAZEPAM [Concomitant]
     Route: 048
  14. SPIRONOLACTONE [Concomitant]
     Route: 048
  15. COMBIVENT [Concomitant]
     Route: 055
  16. POTASSIUM CHLORIDE [Concomitant]
     Route: 048

REACTIONS (1)
  - DEATH [None]
